FAERS Safety Report 7368298-8 (Version None)
Quarter: 2011Q1

REPORT INFORMATION
  Report Type: 
  Country: None (occurrence: None)
  Receive Date: 20110311
  Receipt Date: 20110223
  Transmission Date: 20110831
  Serious: Yes (Hospitalization, Other)
  Sender: FDA-Public Use
  Company Number: 2009S1002328

PATIENT
  Age: 67 Year
  Sex: Female
  Weight: 60.3284 kg

DRUGS (9)
  1. ATACAND HCT [Concomitant]
  2. FOLIC ACID [Concomitant]
  3. SYNTHROID [Concomitant]
  4. ASPIRIN [Concomitant]
  5. VITAMIN B-12 [Concomitant]
  6. VALTREX [Concomitant]
  7. VITAMIN B6 [Concomitant]
  8. PREMARIN [Concomitant]
  9. PHOSPHOSODA FLAVOR NOT SPECIFIED [Suspect]
     Indication: COLONOSCOPY
     Dosage: 90 ML; TOTAL; PO
     Route: 048
     Dates: start: 20050621, end: 20050622

REACTIONS (7)
  - RENAL FAILURE ACUTE [None]
  - DECREASED APPETITE [None]
  - VOMITING [None]
  - HYPOVOLAEMIA [None]
  - DYSGEUSIA [None]
  - FATIGUE [None]
  - NAUSEA [None]
